FAERS Safety Report 7626923-8 (Version None)
Quarter: 2011Q3

REPORT INFORMATION
  Report Type: 
  Country: None (occurrence: None)
  Receive Date: 20110721
  Receipt Date: 20110712
  Transmission Date: 20111222
  Serious: Yes (Other)
  Sender: FDA-Public Use
  Company Number: BG-ASTRAZENECA-2011SE23293

PATIENT
  Age: 19514 Day
  Sex: Female
  Weight: 60 kg

DRUGS (4)
  1. CRESTOR [Suspect]
     Indication: DYSLIPIDAEMIA
     Route: 048
     Dates: start: 20110413, end: 20110415
  2. BISOPROLOL FUMARATE [Concomitant]
     Indication: HYPERTENSION
  3. CRESTOR [Suspect]
     Route: 048
  4. QUIZOCOR PLUS [Concomitant]
     Indication: HYPERTENSION
     Dosage: 10/12.5 MG 1 TABLET DAILY

REACTIONS (1)
  - OEDEMA PERIPHERAL [None]
